FAERS Safety Report 18329031 (Version 2)
Quarter: 2020Q4

REPORT INFORMATION
  Report Type: Report from Study
  Country: US (occurrence: US)
  Receive Date: 20200930
  Receipt Date: 20201007
  Transmission Date: 20210113
  Serious: Yes (Hospitalization, Other)
  Sender: FDA-Public Use
  Company Number: US-BRISTOL-MYERS SQUIBB COMPANY-BMS-2020-014447

PATIENT
  Age: 18 Year
  Sex: Female
  Weight: 90.4 kg

DRUGS (7)
  1. NABUMETONE. [Suspect]
     Active Substance: NABUMETONE
     Indication: JUVENILE IDIOPATHIC ARTHRITIS
     Dosage: 500 MILLIGRAM, BID
     Route: 048
     Dates: start: 20160229, end: 20200108
  2. ABATACEPT [Suspect]
     Active Substance: ABATACEPT
     Indication: JUVENILE IDIOPATHIC ARTHRITIS
     Dosage: 125 MILLIGRAM, QWK
     Route: 058
     Dates: start: 20150401, end: 20200105
  3. MOMETASONE [Suspect]
     Active Substance: MOMETASONE
     Indication: HYPERSENSITIVITY
     Dosage: 200 MICROGRAM, BID
     Dates: start: 20170126, end: 20200108
  4. MONTELUKAST [Suspect]
     Active Substance: MONTELUKAST SODIUM
     Indication: HYPERSENSITIVITY
     Dosage: 5 MILLIGRAM, QD
     Route: 048
     Dates: start: 20090325, end: 20200108
  5. ETHINYLESTRADIOL;FERROUS FUMARATE;NORETHINDRONE [Suspect]
     Active Substance: ETHINYL ESTRADIOL\FERROUS FUMARATE\NORETHINDRONE ACETATE
     Indication: CONTRACEPTION
     Dosage: 1 DOSAGE FORM, QD
     Route: 048
     Dates: start: 201711, end: 20200108
  6. AZELASTINE. [Suspect]
     Active Substance: AZELASTINE HYDROCHLORIDE
     Indication: HYPERSENSITIVITY
     Dosage: 0.1 PERCENT, BID
     Dates: start: 20171116, end: 20200108
  7. LEVOCETIRIZINE [Suspect]
     Active Substance: LEVOCETIRIZINE
     Indication: HYPERSENSITIVITY
     Dosage: 5 MILLIGRAM, QD
     Route: 048
     Dates: start: 20160620, end: 20200108

REACTIONS (7)
  - Intrapartum haemorrhage [Recovered/Resolved]
  - Cephalo-pelvic disproportion [Unknown]
  - Pregnancy on oral contraceptive [Unknown]
  - Pre-eclampsia [Recovering/Resolving]
  - Pleural effusion [Recovered/Resolved]
  - Maternal exposure during pregnancy [Recovered/Resolved]
  - Live birth [Unknown]

NARRATIVE: CASE EVENT DATE: 20200801
